FAERS Safety Report 20193932 (Version 1)
Quarter: 2021Q4

REPORT INFORMATION
  Report Type: Spontaneous
  Country: FR (occurrence: FR)
  Receive Date: 20211216
  Receipt Date: 20211216
  Transmission Date: 20220304
  Serious: Yes (Other)
  Sender: FDA-Public Use
  Company Number: FR-SA-SAC20211101000724

PATIENT
  Sex: Male

DRUGS (2)
  1. ISOTRETINOIN [Suspect]
     Active Substance: ISOTRETINOIN
     Indication: Product used for unknown indication
     Dosage: UNK
  2. VALPROATE SODIUM [Suspect]
     Active Substance: VALPROATE SODIUM
     Indication: Product used for unknown indication
     Dosage: UNK

REACTIONS (8)
  - Encephalitis [Unknown]
  - Muscle twitching [Unknown]
  - Paraesthesia [Unknown]
  - Gastrointestinal inflammation [Unknown]
  - Alopecia [Recovering/Resolving]
  - Abdominal pain upper [Unknown]
  - Depression [Unknown]
  - Product use issue [Unknown]
